FAERS Safety Report 4740852-9 (Version None)
Quarter: 2005Q3

REPORT INFORMATION
  Report Type: 
  Country: None (occurrence: None)
  Receive Date: 20050810
  Receipt Date: 20041215
  Transmission Date: 20060218
  Serious: No
  Sender: FDA-Public Use
  Company Number: US-GLAXOSMITHKLINE-A0537378A

PATIENT

DRUGS (3)
  1. TAGAMET HB 200 [Suspect]
     Dates: start: 20041214
  2. TUMS [Suspect]
     Dates: start: 20041214
  3. TYLENOL (CAPLET) [Concomitant]

REACTIONS (2)
  - FLATULENCE [None]
  - STOMACH DISCOMFORT [None]
